FAERS Safety Report 20202354 (Version 3)
Quarter: 2022Q1

REPORT INFORMATION
  Report Type: Report from Study
  Country: GB (occurrence: GB)
  Receive Date: 20211217
  Receipt Date: 20220321
  Transmission Date: 20220423
  Serious: Yes (Hospitalization, Other)
  Sender: FDA-Public Use
  Company Number: GB-CELLTRION INC.-2021GB017158

PATIENT

DRUGS (29)
  1. TRASTUZUMAB [Suspect]
     Active Substance: TRASTUZUMAB
     Indication: HER2 positive breast cancer
     Dosage: 546 MILLIGRAM, Q3W; PHARMACEUTICAL DOSE FORM (FREE TEXT): 200
     Route: 042
     Dates: start: 20130716
  2. TRASTUZUMAB [Suspect]
     Active Substance: TRASTUZUMAB
     Dosage: 546 MG, EVERY 3 WEEKS (MOST RECENT DOSE ON 16/JUL/2013; PHARMACEUTICAL DOSAGE FORM: 230; CUMULATIVE
     Route: 041
     Dates: start: 20130716
  3. DOCETAXEL [Suspect]
     Active Substance: DOCETAXEL
     Indication: HER2 positive breast cancer
     Dosage: 190 MG, EVERY 3 WEEKS (PHARMACEUTICAL DOSE FORM (FREE TEXT): 120)
     Route: 042
     Dates: start: 20130716
  4. DOCETAXEL [Suspect]
     Active Substance: DOCETAXEL
     Indication: Breast cancer
     Dosage: 190 MG, CYCLIC: EVERY 3 WEEKS
     Route: 042
     Dates: start: 20130716, end: 20130716
  5. DOCETAXEL [Suspect]
     Active Substance: DOCETAXEL
     Indication: HER2 positive breast cancer
     Dosage: 190 MG, EVERY 3 WEEKS (PHARMACEUTICAL DOSAGE FORM: 231)
     Route: 042
     Dates: start: 20130716
  6. FLUOROURACIL [Suspect]
     Active Substance: FLUOROURACIL
     Indication: HER2 positive breast cancer
     Dosage: 900 MILLIGRAM (LAST DOSE PRIOR TO SAE: 25-JUN-2013), MOST RECENT DOSE PRIOR TO AE 25/JUN/2013;PHARMA
     Route: 042
     Dates: start: 20130514, end: 20130625
  7. FLUOROURACIL [Suspect]
     Active Substance: FLUOROURACIL
     Indication: Breast cancer
  8. CYCLOPHOSPHAMIDE [Suspect]
     Active Substance: CYCLOPHOSPHAMIDE
     Indication: HER2 positive breast cancer
     Dosage: 900 MILLIGRAM (LAST DOSE PRIOR TO SAE: 25-JUN-2013); PHARMACEUTICAL DOSE FORM (FREE TEXT): 120
     Route: 042
     Dates: start: 20130514, end: 20130625
  9. CYCLOPHOSPHAMIDE [Suspect]
     Active Substance: CYCLOPHOSPHAMIDE
     Indication: Breast cancer
     Dosage: UNK
     Route: 042
  10. CYCLOPHOSPHAMIDE [Suspect]
     Active Substance: CYCLOPHOSPHAMIDE
     Indication: HER2 positive breast cancer
     Dosage: 900 MG (MOST RECENT DOSE PRIOR TO AE 25/JUN/2013)
     Route: 042
     Dates: start: 20130514, end: 20130625
  11. PERTUZUMAB [Suspect]
     Active Substance: PERTUZUMAB
     Indication: Breast cancer
     Dosage: UNK;PHARMACEUTICAL DOSE FORM (FREE TEXT): 120
  12. PERTUZUMAB [Suspect]
     Active Substance: PERTUZUMAB
     Dosage: UNK; PHARMACEUTICAL DOSE FORM (FREE TEXT): 120
  13. PERTUZUMAB [Suspect]
     Active Substance: PERTUZUMAB
     Dosage: UNK Q3W INFUSION, SOLUTION; PHARMACEUTICAL DOSE FORM (FREE TEXT): 120
     Route: 042
     Dates: start: 20130716
  14. PERTUZUMAB [Suspect]
     Active Substance: PERTUZUMAB
     Dosage: UNK Q3W INFUSION, SOLUTION; PHARMACEUTICAL DOSE FORM (FREE TEXT): 120
     Route: 042
     Dates: start: 20130716
  15. PERTUZUMAB [Suspect]
     Active Substance: PERTUZUMAB
     Indication: Breast cancer
     Dosage: BLINDED PERTUZUMAB: 546 MG EVERY 3 WEEKS
     Route: 042
     Dates: start: 20130716
  16. PERTUZUMAB [Suspect]
     Active Substance: PERTUZUMAB
     Dosage: BLINDED PERTUZUMAB: 546 MG EVERY 3 WEEKS
     Route: 042
     Dates: start: 20130716
  17. EPIRUBICIN HYDROCHLORIDE [Suspect]
     Active Substance: EPIRUBICIN HYDROCHLORIDE
     Indication: HER2 positive breast cancer
     Dosage: 190 MILLIGRAM (LAST DOSE PRIOR TO SAE: 25/JUN/2013);PHARMACEUTICAL DOSE FORM (FREE TEXT): 120
     Route: 042
     Dates: start: 20130514, end: 20130625
  18. EPIRUBICIN HYDROCHLORIDE [Suspect]
     Active Substance: EPIRUBICIN HYDROCHLORIDE
     Indication: Breast cancer
  19. EPIRUBICIN HYDROCHLORIDE [Suspect]
     Active Substance: EPIRUBICIN HYDROCHLORIDE
     Indication: HER2 positive breast cancer
     Dosage: 190 MG MOST RECENT DOSE PRIOR TO AE 25/JUN/2013 (PHARMACEUTICAL DOSAGE FORM: 231)
     Route: 042
     Dates: start: 20130514
  20. HERCEPTIN [Suspect]
     Active Substance: TRASTUZUMAB
     Indication: Breast cancer
     Dosage: 546 MG, QW (CYCLIC: EVERY 3 WEEKS (8 MG/KG))
     Route: 042
     Dates: start: 20130716, end: 20130716
  21. DEXAMETHASONE [Concomitant]
     Active Substance: DEXAMETHASONE
     Dosage: 40 MG, EVERY 3 DAYS
     Route: 065
     Dates: start: 20130715, end: 20130717
  22. DEXAMETHASONE [Concomitant]
     Active Substance: DEXAMETHASONE
     Dosage: 8 MILLIGRAM
     Route: 065
     Dates: start: 20130514
  23. DEXAMETHASONE [Concomitant]
     Active Substance: DEXAMETHASONE
     Dosage: 16 MG
     Route: 065
     Dates: start: 20130715, end: 20130717
  24. DEXAMETHASONE [Concomitant]
     Active Substance: DEXAMETHASONE
     Dosage: 40 MG, EVERY 3 DAYS
     Route: 065
     Dates: start: 20130715
  25. DOMPERIDONE [Concomitant]
     Active Substance: DOMPERIDONE
     Dosage: 80 MG;
     Route: 065
     Dates: start: 20130514
  26. DOMPERIDONE [Concomitant]
     Active Substance: DOMPERIDONE
     Dosage: 40 MG;
     Route: 065
     Dates: start: 20130715
  27. ONDANSETRON [Concomitant]
     Active Substance: ONDANSETRON
     Dosage: 16 MILLIGRAM, UNK
     Route: 065
     Dates: start: 20130514
  28. ACETAMINOPHEN [Concomitant]
     Active Substance: ACETAMINOPHEN
     Dosage: 4000 MG;
     Route: 065
     Dates: start: 20130717
  29. PEGFILGRASTIM [Concomitant]
     Active Substance: PEGFILGRASTIM
     Dosage: 6 MG;
     Route: 065
     Dates: start: 20130515

REACTIONS (6)
  - Neutropenia [Recovered/Resolved]
  - Vomiting [Recovered/Resolved]
  - Myalgia [Unknown]
  - Arthralgia [Unknown]
  - Fatigue [Recovered/Resolved]
  - Off label use [Unknown]

NARRATIVE: CASE EVENT DATE: 20130626
